FAERS Safety Report 25935743 (Version 1)
Quarter: 2025Q4

REPORT INFORMATION
  Report Type: Spontaneous
  Country: JP (occurrence: JP)
  Receive Date: 20251017
  Receipt Date: 20251017
  Transmission Date: 20260118
  Serious: Yes (Hospitalization)
  Sender: ASTELLAS
  Company Number: JP-ASTELLAS-2023JP004560

PATIENT
  Age: 87 Year
  Sex: Female
  Weight: 42 kg

DRUGS (15)
  1. PADCEV [Suspect]
     Active Substance: ENFORTUMAB VEDOTIN-EJFV
     Indication: Ureteric cancer
     Dosage: 1.25MG/KG/WEEK
     Route: 042
     Dates: start: 20230302, end: 20230302
  2. PADCEV [Suspect]
     Active Substance: ENFORTUMAB VEDOTIN-EJFV
     Dosage: 1.25MG/KG/WEEK
     Route: 042
     Dates: start: 20230309, end: 20230309
  3. PADCEV [Suspect]
     Active Substance: ENFORTUMAB VEDOTIN-EJFV
     Dosage: 1.25MG/KG/WEEK
     Route: 042
     Dates: start: 20230316, end: 20230316
  4. PEMBROLIZUMAB [Concomitant]
     Active Substance: PEMBROLIZUMAB
     Indication: Ureteric cancer
     Route: 065
  5. Cefepime Dihydrochloride for Intravenous Injection 1g [SANDOZ] [Concomitant]
     Indication: Neutropenia
     Route: 042
     Dates: start: 20230321, end: 20230325
  6. Filgrastim BS Injection 75ug Syringe [F] [Concomitant]
     Indication: Neutropenia
     Route: 058
     Dates: end: 20230328
  7. Feburic Tablet 20mg [Concomitant]
     Indication: Hyperuricaemia
     Route: 048
  8. DIETARY SUPPLEMENT\PROBIOTICS [Concomitant]
     Active Substance: DIETARY SUPPLEMENT\PROBIOTICS NOS
     Indication: Abdominal symptom
     Route: 048
  9. LANSOPRAZOLE [Concomitant]
     Active Substance: LANSOPRAZOLE
     Indication: Prophylaxis against gastrointestinal ulcer
     Route: 048
  10. Bisoprolol Fumarate Tablet 2.5mg ?Nichi-Iko? [Concomitant]
     Indication: Ventricular extrasystoles
     Route: 048
  11. Lixiana OD Tablet 30mg [Concomitant]
     Indication: Pulmonary embolism
     Route: 048
  12. Magnesium Oxide Tablet 330mg ?Kenei? [Concomitant]
     Indication: Constipation
     Route: 048
  13. OLOPATADINE [Concomitant]
     Active Substance: OLOPATADINE
     Indication: Rash maculo-papular
     Route: 048
     Dates: start: 20240324
  14. DIFLUPREDNATE [Concomitant]
     Active Substance: DIFLUPREDNATE
     Indication: Rash maculo-papular
     Route: 048
     Dates: start: 20230324
  15. DIFLUPREDNATE [Concomitant]
     Active Substance: DIFLUPREDNATE
     Indication: Stevens-Johnson syndrome

REACTIONS (6)
  - White blood cell count decreased [Recovered/Resolved]
  - Neutropenia [Recovered/Resolved]
  - Stevens-Johnson syndrome [Recovered/Resolved]
  - Decreased appetite [Unknown]
  - Liver disorder [Recovered/Resolved]
  - Prescribed overdose [Unknown]

NARRATIVE: CASE EVENT DATE: 20230302
